FAERS Safety Report 22599306 (Version 1)
Quarter: 2023Q2

REPORT INFORMATION
  Report Type: Spontaneous
  Country: US (occurrence: None)
  Receive Date: 20230613
  Receipt Date: 20230613
  Transmission Date: 20230721
  Serious: Yes (Hospitalization)
  Sender: FDA-Public Use
  Company Number: None

PATIENT
  Age: 83 Year
  Sex: Female

DRUGS (1)
  1. CAPECITABINE [Suspect]
     Active Substance: CAPECITABINE
     Indication: Breast cancer female
     Dosage: 500MG, 2 TABLETS TWICE DAILY FOR 14 DAYS, OFF 7 DAYS.
     Dates: start: 20220806

REACTIONS (1)
  - Fall [None]

NARRATIVE: CASE EVENT DATE: 20230612
